FAERS Safety Report 20237086 (Version 7)
Quarter: 2022Q1

REPORT INFORMATION
  Report Type: Spontaneous
  Country: US (occurrence: US)
  Receive Date: 20211228
  Receipt Date: 20220305
  Transmission Date: 20220423
  Serious: No
  Sender: FDA-Public Use
  Company Number: US-UNITED THERAPEUTICS-UNT-2021-025838

PATIENT
  Age: 46 Year
  Sex: Female
  Weight: 81.633 kg

DRUGS (7)
  1. REMODULIN [Suspect]
     Active Substance: TREPROSTINIL
     Indication: Pulmonary arterial hypertension
     Dosage: 0.005 ?G/KG, CONTINUING
     Route: 058
     Dates: start: 20211214
  2. REMODULIN [Suspect]
     Active Substance: TREPROSTINIL
     Dosage: 0.040 ?G/KG, CONTINUING
     Route: 058
  3. REMODULIN [Suspect]
     Active Substance: TREPROSTINIL
     Dosage: 0.050 ?G/KG, CONTINUING
     Route: 058
  4. OPSUMIT [Concomitant]
     Active Substance: MACITENTAN
     Indication: Pulmonary arterial hypertension
     Dosage: 10 MG, QD
     Route: 048
     Dates: start: 2019
  5. UPTRAVI [Concomitant]
     Active Substance: SELEXIPAG
     Indication: Pulmonary arterial hypertension
     Dosage: 1400 ?G, BID
     Route: 048
     Dates: start: 2019
  6. UPTRAVI [Concomitant]
     Active Substance: SELEXIPAG
     Dosage: 200 ?G, BID
     Route: 048
  7. ADEMPAS [Concomitant]
     Active Substance: RIOCIGUAT
     Indication: Product used for unknown indication
     Dosage: UNK
     Route: 065

REACTIONS (12)
  - Device dislocation [Unknown]
  - Diarrhoea [Unknown]
  - Headache [Unknown]
  - Infusion site pain [Recovering/Resolving]
  - Infusion site erythema [Unknown]
  - Infusion site swelling [Unknown]
  - Gastrointestinal disorder [Recovering/Resolving]
  - Infusion site induration [Unknown]
  - Blood potassium decreased [Unknown]
  - Infusion site pruritus [Unknown]
  - Dermatitis contact [Unknown]
  - Infusion site discomfort [Unknown]

NARRATIVE: CASE EVENT DATE: 20211201
